FAERS Safety Report 7374005 (Version 13)
Quarter: 2013Q1

REPORT INFORMATION
  Report Type: Spontaneous
  Country: US (occurrence: US)
  Receive Date: 20100503
  Receipt Date: 20130327
  Transmission Date: 20140127
  Serious: Yes (Hospitalization, Disabling, Other)
  Sender: FDA-Public Use
  Company Number: US-009507513-1004USA04607

PATIENT
  Sex: Female
  Weight: 80.51 kg

DRUGS (8)
  1. FOSAMAX [Suspect]
     Indication: OSTEOPENIA
     Dosage: 70 MG, QW
     Route: 048
     Dates: start: 200108, end: 200606
  2. ZOCOR [Concomitant]
     Route: 048
     Dates: start: 19961030, end: 20090622
  3. CALCIUM (UNSPECIFIED) [Concomitant]
  4. CALCIUM (UNSPECIFIED) (+) VITAMIN D (UNSPECIFIED) [Concomitant]
  5. MAGNESIUM [Concomitant]
     Dosage: 60 MG, QD
     Route: 048
  6. OMEGA-3 ACID ETHYL ESTERS [Concomitant]
     Dosage: 1 MG, QD
     Route: 048
  7. UBIDECARENONE [Concomitant]
  8. MK-9278 [Concomitant]

REACTIONS (58)
  - Femur fracture [Unknown]
  - Stress fracture [Unknown]
  - Osteoporosis [Unknown]
  - Low turnover osteopathy [Unknown]
  - Femur fracture [Unknown]
  - Open reduction of fracture [Unknown]
  - Bone graft [Unknown]
  - Dysfunctional uterine bleeding [Unknown]
  - Anaemia [Not Recovered/Not Resolved]
  - Anaemia postoperative [Unknown]
  - Intervertebral disc degeneration [Not Recovered/Not Resolved]
  - Medical device removal [Unknown]
  - Thyroid neoplasm [Unknown]
  - Eyelid ptosis [Unknown]
  - Adenoidal disorder [Unknown]
  - Arthropathy [Unknown]
  - Malignant histiocytosis [Unknown]
  - Groin pain [Unknown]
  - Type 2 diabetes mellitus [Not Recovered/Not Resolved]
  - Hypothyroidism [Not Recovered/Not Resolved]
  - Postmenopausal haemorrhage [Unknown]
  - Haemorrhoids [Unknown]
  - Acrochordon [Unknown]
  - Fracture nonunion [Unknown]
  - Fall [Unknown]
  - Haematochezia [Not Recovered/Not Resolved]
  - Dry skin [Not Recovered/Not Resolved]
  - Spinal osteoarthritis [Unknown]
  - Intervertebral disc protrusion [Unknown]
  - Spinal disorder [Unknown]
  - Melanocytic naevus [Unknown]
  - Glaucoma [Unknown]
  - Herpes zoster [Unknown]
  - Peptic ulcer [Unknown]
  - Cauda equina syndrome [Unknown]
  - Carpal tunnel syndrome [Unknown]
  - Cystitis [Unknown]
  - Ear pain [Unknown]
  - Pelvic pain [Unknown]
  - Chest pain [Unknown]
  - Cough [Unknown]
  - Sinus disorder [Unknown]
  - Infection [Unknown]
  - Sleep apnoea syndrome [Unknown]
  - Peripheral vascular disorder [Unknown]
  - Osteoarthritis [Unknown]
  - Pneumonia bacterial [Unknown]
  - Large intestine polyp [Unknown]
  - Cataract [Unknown]
  - Dizziness [Not Recovered/Not Resolved]
  - Back pain [Unknown]
  - Musculoskeletal pain [Recovering/Resolving]
  - Pain in extremity [Unknown]
  - Pain in extremity [Unknown]
  - Drug hypersensitivity [Unknown]
  - Abdominal pain upper [Recovered/Resolved]
  - Arthralgia [Unknown]
  - Pruritus [Unknown]
